FAERS Safety Report 8529455 (Version 7)
Quarter: 2013Q3

REPORT INFORMATION
  Report Type: Report from Study
  Country: US (occurrence: US)
  Receive Date: 20120425
  Receipt Date: 20130729
  Transmission Date: 20140515
  Serious: Yes (Congenital Anomaly, Other)
  Sender: FDA-Public Use
  Company Number: US-B.I. PHARMACEUTICALS,INC./RIDGEFIELD-2012-BP-07112BP

PATIENT
  Age: 0 None
  Sex: Male
  Weight: 2.02 kg

DRUGS (6)
  1. VIRAMUNE [Suspect]
     Indication: EXPOSURE DURING PREGNANCY
     Route: 064
  2. ZERIT [Concomitant]
     Indication: EXPOSURE DURING PREGNANCY
     Dosage: 40 MG
     Route: 064
     Dates: end: 20110715
  3. EPIVIR [Concomitant]
     Indication: EXPOSURE DURING PREGNANCY
     Dosage: 300 MG
     Route: 064
     Dates: end: 20110715
  4. COMBIVIR [Concomitant]
     Indication: EXPOSURE DURING PREGNANCY
     Route: 064
     Dates: start: 20110715
  5. RETROVIR [Concomitant]
     Indication: EXPOSURE DURING PREGNANCY
     Route: 064
     Dates: start: 20111007, end: 20111007
  6. RETROVIR [Concomitant]
     Route: 064
     Dates: start: 20111007, end: 20111007

REACTIONS (6)
  - Ultrasound antenatal screen [Unknown]
  - Congenital bowing of long bones [Unknown]
  - Ventricular septal defect [Recovered/Resolved]
  - Trisomy 21 [Unknown]
  - Premature baby [Unknown]
  - Low birth weight baby [Unknown]
